FAERS Safety Report 6539649-9 (Version None)
Quarter: 2010Q1

REPORT INFORMATION
  Report Type: 
  Country: None (occurrence: None)
  Receive Date: 20100115
  Receipt Date: 20100108
  Transmission Date: 20100710
  Serious: Yes (Other)
  Sender: FDA-Public Use
  Company Number: US-ROCHE-678962

PATIENT
  Age: 61 Year
  Sex: Female

DRUGS (2)
  1. BONIVA [Suspect]
     Indication: DRUG USE FOR UNKNOWN INDICATION
     Route: 065
  2. BOTOX [Concomitant]
     Dosage: FOR YEARS

REACTIONS (2)
  - BLEPHAROSPASM [None]
  - MUSCLE DISORDER [None]
